FAERS Safety Report 6557323-X (Version None)
Quarter: 2010Q1

REPORT INFORMATION
  Report Type: 
  Country: None (occurrence: None)
  Receive Date: 20100129
  Receipt Date: 20100125
  Transmission Date: 20100710
  Serious: Yes (Life-Threatening, Other)
  Sender: FDA-Public Use
  Company Number: US-BAYER-200934056NA

PATIENT
  Age: 60 Year
  Sex: Female
  Weight: 50 kg

DRUGS (11)
  1. SORAFENIB [Suspect]
     Indication: METASTATIC CARCINOID TUMOUR
     Dosage: TOTAL DAILY DOSE: 400 MG  UNIT DOSE: 200 MG
     Route: 048
     Dates: start: 20090819, end: 20091209
  2. RAD001 [Suspect]
     Indication: METASTATIC CARCINOID TUMOUR
     Dosage: TOTAL DAILY DOSE: 10 MG
     Route: 048
     Dates: start: 20090819, end: 20091209
  3. OCTREOTIDE ACETATE [Concomitant]
     Dosage: TOTAL DAILY DOSE: 300 ?G
     Route: 058
  4. OMEPRAZOLE [Concomitant]
     Dosage: TOTAL DAILY DOSE: 40 MG
     Route: 048
  5. PROPRANOLOL [Concomitant]
     Dosage: TOTAL DAILY DOSE: 40 MG
     Route: 048
  6. RALOXIFENE HCL [Concomitant]
  7. IBUPROFEN [Concomitant]
     Route: 048
  8. CREON [Concomitant]
     Dosage: AS USED: 20 MG
     Route: 048
  9. ATIVAN [Concomitant]
  10. DTO [Concomitant]
     Dosage: AS USED: 0.6 ML
     Route: 048
  11. ACYCLOVIR [Concomitant]

REACTIONS (3)
  - DIARRHOEA [None]
  - HYPOCALCAEMIA [None]
  - HYPOPHOSPHATAEMIA [None]
